FAERS Safety Report 20226639 (Version 1)
Quarter: 2021Q4

REPORT INFORMATION
  Report Type: Spontaneous
  Country: DE (occurrence: DE)
  Receive Date: 20211224
  Receipt Date: 20211224
  Transmission Date: 20220304
  Serious: Yes (Hospitalization)
  Sender: FDA-Public Use
  Company Number: None

PATIENT
  Age: 68 Year
  Sex: Male
  Weight: 99 kg

DRUGS (4)
  1. HYDROCHLOROTHIAZIDE [Suspect]
     Active Substance: HYDROCHLOROTHIAZIDE
     Indication: Product used for unknown indication
     Dosage: 25 MG. QD (25 MG, 1-0-0-0, TABLETTEN)
     Route: 048
  2. DUTASTERIDE [Suspect]
     Active Substance: DUTASTERIDE
     Indication: Product used for unknown indication
     Dosage: 0.5 MG (0.5 MG, PAUSIERT)
     Route: 048
  3. RAMIPRIL [Concomitant]
     Active Substance: RAMIPRIL
     Indication: Product used for unknown indication
     Dosage: 10 MG, QD (10 MG, 1-0-0-0, TABLETTEN)
     Route: 048
  4. METOPROLOL [Concomitant]
     Active Substance: METOPROLOL
     Indication: Product used for unknown indication
     Dosage: 23.75 MG (23.75 MG, 0.5-0-0.5-0, RETARD-TABLETTEN)
     Route: 048

REACTIONS (3)
  - Dyspnoea [Unknown]
  - Dry mouth [Unknown]
  - Hypertension [Unknown]
